FAERS Safety Report 8516178-4 (Version None)
Quarter: 2012Q3

REPORT INFORMATION
  Report Type: 
  Country: None (occurrence: None)
  Receive Date: 20120717
  Receipt Date: 20120712
  Transmission Date: 20120928
  Serious: Yes (Hospitalization, Other)
  Sender: FDA-Public Use
  Company Number: BR-BAYER-2012-059972

PATIENT
  Age: 43 Year
  Sex: Female

DRUGS (2)
  1. MIRENA [Suspect]
     Dosage: 20 ?G/D, CONT
     Route: 015
     Dates: start: 20120601, end: 20120608
  2. UNCODEABLE ^UNCLASSIFIABLE^ [Concomitant]
     Indication: SEDATIVE THERAPY

REACTIONS (6)
  - INTESTINAL PERFORATION [None]
  - DEVICE DISLOCATION [None]
  - ASTHENIA [None]
  - SEPTIC SHOCK [None]
  - ABDOMINAL PAIN [None]
  - PYREXIA [None]
